FAERS Safety Report 5086668-8 (Version None)
Quarter: 2006Q3

REPORT INFORMATION
  Report Type: 
  Country: None (occurrence: None)
  Receive Date: 20060823
  Receipt Date: 20051102
  Transmission Date: 20061208
  Serious: No
  Sender: FDA-Public Use
  Company Number: US-GLAXOSMITHKLINE-A0580670A

PATIENT
  Age: 63 Year
  Sex: Female

DRUGS (2)
  1. MALARONE [Suspect]
     Indication: MALARIA
     Dosage: 1TAB PER DAY
     Route: 048
     Dates: start: 20050912, end: 20051012
  2. ACTONEL [Concomitant]

REACTIONS (2)
  - LIP BLISTER [None]
  - ORAL MUCOSAL BLISTERING [None]
